FAERS Safety Report 9217392 (Version 3)
Quarter: 2013Q4

REPORT INFORMATION
  Report Type: Spontaneous
  Country: BR (occurrence: BR)
  Receive Date: 20130408
  Receipt Date: 20131221
  Transmission Date: 20140711
  Serious: Yes (Other)
  Sender: FDA-Public Use
  Company Number: BR-ASTRAZENECA-2013SE20886

PATIENT
  Sex: Female

DRUGS (3)
  1. SELOZOK [Suspect]
     Indication: ARRHYTHMIA
     Route: 048
     Dates: end: 201205
  2. SELOZOK [Suspect]
     Indication: ARRHYTHMIA
     Route: 048
     Dates: start: 201207, end: 2013
  3. SELOZOK [Suspect]
     Indication: ARRHYTHMIA
     Route: 048
     Dates: start: 2013, end: 201303

REACTIONS (4)
  - Drug dose omission [Recovered/Resolved]
  - Off label use [Recovered/Resolved]
  - Exposure during pregnancy [Not Recovered/Not Resolved]
  - Arrhythmia [Recovered/Resolved]
